FAERS Safety Report 4598587-1 (Version None)
Quarter: 2005Q1

REPORT INFORMATION
  Report Type: 
  Country: None (occurrence: None)
  Receive Date: 20050207
  Receipt Date: 20040209
  Transmission Date: 20050727
  Serious: Yes (Other)
  Sender: FDA-Public Use
  Company Number: PROG00204001077

PATIENT
  Age: 63 Year
  Sex: Female
  Weight: 66 kg

DRUGS (3)
  1. PROMETRIUM [Suspect]
     Indication: HORMONE REPLACEMENT THERAPY
     Dosage: DAILY ORAL
     Route: 048
     Dates: start: 19881101, end: 19991201
  2. PREMPRO [Suspect]
     Indication: HORMONE REPLACEMENT THERAPY
     Dosage: 0.625 MG MILLIGRAM(S) DAILY ORAL
     Route: 048
     Dates: start: 20001201, end: 20020228
  3. CLIMARA [Suspect]
     Indication: ILL-DEFINED DISORDER
     Dosage: DAILY TRANSCUTANEOUS
     Dates: start: 19880101, end: 19991201

REACTIONS (1)
  - CEREBROVASCULAR ACCIDENT [None]
